FAERS Safety Report 5004500-5 (Version None)
Quarter: 2006Q2

REPORT INFORMATION
  Report Type: 
  Country: None (occurrence: None)
  Receive Date: 20060511
  Receipt Date: 20060503
  Transmission Date: 20061013
  Serious: Yes (Hospitalization, Other)
  Sender: FDA-Public Use
  Company Number: 2006029629

PATIENT
  Age: 57 Year
  Sex: Female
  Weight: 95.2554 kg

DRUGS (10)
  1. LYRICA [Suspect]
     Indication: FIBROMYALGIA
     Dosage: 600 MG (1 D),
     Dates: start: 20060101, end: 20060101
  2. DEMEROL [Suspect]
     Indication: PAIN
     Dates: start: 20060101
  3. VALIUM [Suspect]
     Indication: DYSKINESIA
     Dates: start: 20060101
  4. LASIX [Suspect]
     Indication: ILL-DEFINED DISORDER
     Dosage: INTRAVENOUS
     Route: 042
     Dates: start: 20060101
  5. PROZAC [Concomitant]
  6. LISINOPRIL [Concomitant]
  7. CALCIUM (CALCIUM) [Concomitant]
  8. VITAMINS (VITAMINS) [Concomitant]
  9. TRAZODONE HCL [Concomitant]
  10. KLONOPIN [Concomitant]

REACTIONS (13)
  - DYSKINESIA [None]
  - FEELING ABNORMAL [None]
  - HERPES ZOSTER MULTI-DERMATOMAL [None]
  - MORBID THOUGHTS [None]
  - OEDEMA PERIPHERAL [None]
  - PITTING OEDEMA [None]
  - POST HERPETIC NEURALGIA [None]
  - SOMNOLENCE [None]
  - SWELLING [None]
  - TREATMENT NONCOMPLIANCE [None]
  - TREMOR [None]
  - WEIGHT DECREASED [None]
  - WEIGHT INCREASED [None]
